FAERS Safety Report 23207905 (Version 2)
Quarter: 2024Q1

REPORT INFORMATION
  Report Type: Spontaneous
  Country: CA (occurrence: CA)
  Receive Date: 20231121
  Receipt Date: 20240115
  Transmission Date: 20240409
  Serious: Yes (Other)
  Sender: FDA-Public Use
  Company Number: CA-CELLTRION INC.-2020CA022689

PATIENT

DRUGS (29)
  1. INFLECTRA [Suspect]
     Active Substance: INFLIXIMAB-DYYB
     Indication: Crohn^s disease
     Dosage: 5 MG/KG, AT 0, 2, 6 THEN EVERY 8, INDUCTION WEEK 0 DOSE
     Route: 042
     Dates: start: 20191029, end: 20191029
  2. INFLECTRA [Suspect]
     Active Substance: INFLIXIMAB-DYYB
     Dosage: 5 MG/KG, AT 0, 2, 6 WEEKS, THEN EVERY 8 WEEK 2 DOSE
     Route: 042
     Dates: start: 20191114, end: 20191114
  3. INFLECTRA [Suspect]
     Active Substance: INFLIXIMAB-DYYB
     Dosage: 5 MG/KG, AT 0, 2, 6 WEEKS, THEN EVERY 8 WEEK, INDUCTION WEEK 6 DOSE
     Route: 042
     Dates: start: 20191213, end: 20191213
  4. INFLECTRA [Suspect]
     Active Substance: INFLIXIMAB-DYYB
     Dosage: 5 MG/KG, AT 0, 2, 6 THEN EVERY 8 WEEKS
     Route: 042
     Dates: start: 20200204
  5. INFLECTRA [Suspect]
     Active Substance: INFLIXIMAB-DYYB
     Dosage: 5 MG/KG, AT 0, 2, 6 THEN EVERY 8 WEEKS
     Route: 042
     Dates: start: 20200526, end: 20200526
  6. INFLECTRA [Suspect]
     Active Substance: INFLIXIMAB-DYYB
     Dosage: 5 MG/KG, AT 0, 2, 6 THEN EVERY 8 WEEKS
     Route: 042
     Dates: start: 20200721, end: 20200721
  7. INFLECTRA [Suspect]
     Active Substance: INFLIXIMAB-DYYB
     Dosage: 5 MG/KG, AT 0, 2, 6 THEN EVERY 8 WEEKS
     Route: 042
     Dates: start: 20200917
  8. INFLECTRA [Suspect]
     Active Substance: INFLIXIMAB-DYYB
     Dosage: 5 MG/KG, AT 0, 2, 6 THEN EVERY 8 WEEKS
     Route: 042
     Dates: start: 20201124, end: 20201124
  9. INFLECTRA [Suspect]
     Active Substance: INFLIXIMAB-DYYB
     Dosage: 5 MG/KG, EVERY 8 WEEKS
     Route: 042
     Dates: start: 20210119
  10. INFLECTRA [Suspect]
     Active Substance: INFLIXIMAB-DYYB
     Dosage: 5 MG/KG, EVERY 8 WEEKS
     Route: 042
     Dates: start: 20210325, end: 20210325
  11. INFLECTRA [Suspect]
     Active Substance: INFLIXIMAB-DYYB
     Dosage: 5 MG/KG, EVERY 8 WEEKS
     Route: 042
     Dates: start: 20210603
  12. INFLECTRA [Suspect]
     Active Substance: INFLIXIMAB-DYYB
     Dosage: 5 MG/KG, AT 0, 2, 6 THEN EVERY 8 WEEKS
     Route: 042
     Dates: start: 20210729
  13. INFLECTRA [Suspect]
     Active Substance: INFLIXIMAB-DYYB
     Dosage: 5 MG/KG, EVERY 8 WEEKS
     Route: 042
     Dates: start: 20210923
  14. INFLECTRA [Suspect]
     Active Substance: INFLIXIMAB-DYYB
     Dosage: 5 MG/KG, EVERY 8 WEEKS
     Route: 042
     Dates: start: 20211118
  15. INFLECTRA [Suspect]
     Active Substance: INFLIXIMAB-DYYB
     Dosage: 5 MG AT EVERY 8 WEEKS
     Route: 042
     Dates: start: 20220113
  16. INFLECTRA [Suspect]
     Active Substance: INFLIXIMAB-DYYB
     Dosage: 5 MG, EVERY 8 WEEKS
     Route: 042
     Dates: start: 20220310
  17. INFLECTRA [Suspect]
     Active Substance: INFLIXIMAB-DYYB
     Dosage: 5 MG/KG, EVERY 8 WEEKS
     Route: 042
     Dates: start: 20220510
  18. INFLECTRA [Suspect]
     Active Substance: INFLIXIMAB-DYYB
     Dosage: 5 MG/KG, EVERY 8 WEEKS
     Route: 042
     Dates: start: 20220628
  19. INFLECTRA [Suspect]
     Active Substance: INFLIXIMAB-DYYB
     Dosage: 5 MG/KG, EVERY 8 WEEKS
     Route: 042
     Dates: start: 20220915
  20. INFLECTRA [Suspect]
     Active Substance: INFLIXIMAB-DYYB
     Dosage: 5 MG/KG, EVERY 8 WEEKS
     Route: 042
     Dates: start: 20221110
  21. INFLECTRA [Suspect]
     Active Substance: INFLIXIMAB-DYYB
     Dosage: 5 MG/KG, EVERY 8 WEEKS
     Route: 042
     Dates: start: 20230112
  22. INFLECTRA [Suspect]
     Active Substance: INFLIXIMAB-DYYB
     Dosage: 385 MG (5 MG/KG) EVERY 8 WEEKS
     Route: 042
     Dates: start: 20230309
  23. INFLECTRA [Suspect]
     Active Substance: INFLIXIMAB-DYYB
     Dosage: 385 MG (5 MG/KG) EVERY 8 WEEKS
     Route: 042
     Dates: start: 20230309
  24. INFLECTRA [Suspect]
     Active Substance: INFLIXIMAB-DYYB
     Dosage: 365 MG (5 MG/KG) 13 WEEKS AFTER LAST INFUSION (SUPPOSED TO BE EVERY 8 WEEKS)
     Route: 042
     Dates: start: 20230608
  25. INFLECTRA [Suspect]
     Active Substance: INFLIXIMAB-DYYB
     Dosage: 365 MG (5 MG/KG) 13 WEEKS AFTER LAST INFUSION (SUPPOSED TO BE EVERY 8 WEEKS)
     Route: 042
     Dates: start: 20230608
  26. INFLECTRA [Suspect]
     Active Substance: INFLIXIMAB-DYYB
     Dosage: 5 MG/KG EVERY 8 WEEK (360MG AFTER 22 WEEKS AND 1 DAY)
     Route: 042
     Dates: start: 20231110
  27. INFLECTRA [Suspect]
     Active Substance: INFLIXIMAB-DYYB
     Dosage: 5 MG/KG, EVERY 8 WEEKS (375 MG)
     Route: 042
     Dates: start: 20240105
  28. PANTOPRAZOLE SODIUM [Concomitant]
     Active Substance: PANTOPRAZOLE SODIUM
     Dosage: UNK
  29. PROPRANOLOL [Concomitant]
     Active Substance: PROPRANOLOL HYDROCHLORIDE
     Dosage: UNK

REACTIONS (24)
  - Condition aggravated [Recovering/Resolving]
  - Weight decreased [Recovered/Resolved]
  - Oropharyngeal pain [Unknown]
  - Throat irritation [Unknown]
  - Blood pressure diastolic increased [Unknown]
  - Abscess [Unknown]
  - Anal fissure [Unknown]
  - Condition aggravated [Recovered/Resolved]
  - Fistula [Unknown]
  - Arthralgia [Unknown]
  - Attention deficit hyperactivity disorder [Unknown]
  - Gastritis [Unknown]
  - Pyrexia [Recovered/Resolved]
  - Chills [Recovered/Resolved]
  - Aphthous ulcer [Unknown]
  - Blood pressure increased [Unknown]
  - Heart rate increased [Unknown]
  - Feeling abnormal [Unknown]
  - Arthralgia [Recovered/Resolved]
  - Malaise [Not Recovered/Not Resolved]
  - Intentional dose omission [Unknown]
  - Inappropriate schedule of product administration [Unknown]
  - Intentional product use issue [Unknown]
  - Off label use [Unknown]

NARRATIVE: CASE EVENT DATE: 20200526
